FAERS Safety Report 9785810 (Version 1)
Quarter: 2013Q4

REPORT INFORMATION
  Report Type: Spontaneous
  Country: GB (occurrence: GB)
  Receive Date: 20131227
  Receipt Date: 20131227
  Transmission Date: 20140711
  Serious: Yes (Hospitalization)
  Sender: FDA-Public Use
  Company Number: GB-JNJFOC-20131214049

PATIENT
  Age: 47 Year
  Sex: Male
  Weight: 90 kg

DRUGS (6)
  1. XARELTO [Suspect]
     Indication: PULMONARY EMBOLISM
     Route: 048
     Dates: start: 20131112, end: 20131204
  2. AMOXICILLIN [Concomitant]
     Indication: PNEUMONIA
     Route: 048
     Dates: start: 20131108, end: 20131114
  3. CLARITHROMYCIN [Concomitant]
     Indication: PNEUMONIA
     Route: 048
     Dates: start: 20131108, end: 20131114
  4. IBUPROFEN [Concomitant]
     Indication: PAIN
     Route: 048
     Dates: start: 20131112, end: 20131126
  5. PARACETAMOL [Concomitant]
     Indication: PAIN
     Route: 048
     Dates: start: 20131211
  6. ZOPICLONE [Concomitant]
     Indication: INSOMNIA
     Route: 048

REACTIONS (3)
  - Rectal haemorrhage [Recovered/Resolved]
  - Dizziness [Unknown]
  - Abdominal tenderness [Unknown]
